FAERS Safety Report 17887723 (Version 3)
Quarter: 2020Q3

REPORT INFORMATION
  Report Type: Spontaneous
  Country: JP (occurrence: JP)
  Receive Date: 20200611
  Receipt Date: 20200813
  Transmission Date: 20201103
  Serious: Yes (Other)
  Sender: FDA-Public Use
  Company Number: JP-BRISTOL-MYERS SQUIBB COMPANY-BMS-2020-045797

PATIENT

DRUGS (2)
  1. YERVOY [Suspect]
     Active Substance: IPILIMUMAB
     Indication: MALIGNANT MELANOMA
     Dosage: 3 MILLIGRAM/KILOGRAM, Q3WK
     Route: 041
     Dates: start: 2020, end: 2020
  2. OPDIVO [Suspect]
     Active Substance: NIVOLUMAB
     Indication: MALIGNANT MELANOMA
     Dosage: 80 MILLIGRAM/KILOGRAM, Q3WK
     Route: 041
     Dates: start: 2020, end: 2020

REACTIONS (1)
  - Pancytopenia [Unknown]

NARRATIVE: CASE EVENT DATE: 2020
